FAERS Safety Report 19025289 (Version 3)
Quarter: 2021Q3

REPORT INFORMATION
  Report Type: Other
  Country: US (occurrence: US)
  Receive Date: 20210318
  Receipt Date: 20210903
  Transmission Date: 20211014
  Serious: Yes (Death, Hospitalization)
  Sender: FDA-Public Use
  Company Number: US-ROCHE-2788923

PATIENT
  Age: 50 Year
  Sex: Female
  Weight: 118.04 kg

DRUGS (7)
  1. AMPYRA [Concomitant]
     Active Substance: DALFAMPRIDINE
     Dates: start: 2005
  2. CARVEDIOL [Concomitant]
     Active Substance: CARVEDILOL
     Dates: start: 2018
  3. SPIRONOLACTONE. [Concomitant]
     Active Substance: SPIRONOLACTONE
     Dates: start: 2018
  4. OXYBUTYNIN. [Concomitant]
     Active Substance: OXYBUTYNIN CHLORIDE
  5. BACLOFEN. [Concomitant]
     Active Substance: BACLOFEN
     Dosage: 10 EVERY MORNING, 10 ONCE A DAY (LUNCH), 20?30 MG EVERY HOUR
     Dates: start: 2014
  6. OCRELIZUMAB. [Suspect]
     Active Substance: OCRELIZUMAB
     Indication: MULTIPLE SCLEROSIS
     Route: 042
     Dates: start: 201708, end: 20201211
  7. OTEZLA [Concomitant]
     Active Substance: APREMILAST
     Dates: start: 202009

REACTIONS (2)
  - Dyspnoea [Unknown]
  - COVID-19 [Fatal]

NARRATIVE: CASE EVENT DATE: 202101
